FAERS Safety Report 17187272 (Version 1)
Quarter: 2019Q4

REPORT INFORMATION
  Report Type: Report from Study
  Country: US (occurrence: US)
  Receive Date: 20191220
  Receipt Date: 20191220
  Transmission Date: 20200122
  Serious: Yes (Death)
  Sender: FDA-Public Use
  Company Number: US-ACTELION PHARMACEUTICALS LTD.-A-NJ2014-109463

PATIENT
  Age: 83 Year
  Sex: Female
  Weight: 52.15 kg

DRUGS (1)
  1. OPSUMIT [Suspect]
     Active Substance: MACITENTAN
     Indication: PULMONARY HYPERTENSION
     Dosage: 10 MG, QD
     Route: 048
     Dates: start: 20141112, end: 201712

REACTIONS (10)
  - Death [Fatal]
  - Malaise [Unknown]
  - Contusion [Unknown]
  - Hospice care [Unknown]
  - Haematoma [Unknown]
  - Fall [Unknown]
  - Haemorrhage [Unknown]
  - Loss of consciousness [Unknown]
  - Headache [Unknown]
  - Nausea [Unknown]

NARRATIVE: CASE EVENT DATE: 20191205
